FAERS Safety Report 9071158 (Version 1)
Quarter: 2013Q1

REPORT INFORMATION
  Report Type: Report from Study
  Country: US (occurrence: US)
  Receive Date: 20130129
  Receipt Date: 20130129
  Transmission Date: 20140127
  Serious: No
  Sender: FDA-Public Use
  Company Number: US-ABBOTT-12P-163-0921079-00

PATIENT
  Age: 40 Year
  Sex: Male

DRUGS (4)
  1. HUMIRA 40 MG/0.8 ML PEN [Suspect]
     Indication: RHEUMATOID ARTHRITIS
     Dates: start: 201110
  2. SULFASATHALIZONE [Concomitant]
     Indication: RHEUMATOID ARTHRITIS
     Dosage: 2000 MG DAILY
  3. PLAQUENIL [Concomitant]
     Indication: RHEUMATOID ARTHRITIS
     Dosage: 400 MG DAILY
  4. CITALOPRAM HBR [Concomitant]
     Indication: MEDICAL DIET
     Dosage: 20 MG DAILY

REACTIONS (4)
  - Incorrect dose administered [Unknown]
  - Drug administration error [Unknown]
  - Injection site pain [Recovered/Resolved]
  - Nausea [Recovered/Resolved]
